FAERS Safety Report 13458001 (Version 1)
Quarter: 2017Q2

REPORT INFORMATION
  Report Type: Report from Study
  Country: DE (occurrence: DE)
  Receive Date: 20170419
  Receipt Date: 20170419
  Transmission Date: 20170830
  Serious: Yes (Hospitalization)
  Sender: FDA-Public Use
  Company Number: DE-ROCHE-1188308

PATIENT
  Age: 55 Year
  Sex: Female
  Weight: 47 kg

DRUGS (46)
  1. PARACETAMOL [Concomitant]
     Active Substance: ACETAMINOPHEN
     Indication: PREMEDICATION
     Route: 065
     Dates: start: 20111107, end: 20111107
  2. PARACETAMOL [Concomitant]
     Active Substance: ACETAMINOPHEN
     Route: 065
     Dates: start: 20120423, end: 20120423
  3. LECICARBON (GERMANY) [Concomitant]
     Indication: CONSTIPATION
     Route: 065
     Dates: start: 20120222, end: 20130221
  4. NOVALGIN [Concomitant]
     Active Substance: METAMIZOLE SODIUM
     Indication: HEADACHE
     Route: 065
     Dates: start: 20121121, end: 20131123
  5. OCRELIZUMAB [Suspect]
     Active Substance: OCRELIZUMAB
     Route: 042
     Dates: start: 20111123, end: 20111123
  6. AERIUS (GERMANY) [Concomitant]
     Indication: PREMEDICATION
     Route: 065
     Dates: start: 20111107, end: 20111107
  7. AERIUS (GERMANY) [Concomitant]
     Route: 065
     Dates: start: 20120507, end: 20120507
  8. METHYLPREDNISOLONE. [Concomitant]
     Active Substance: METHYLPREDNISOLONE
     Route: 065
     Dates: start: 20120423, end: 20121123
  9. NIFURANTIN [Concomitant]
     Indication: INFECTION
     Route: 065
     Dates: start: 20140218, end: 20140225
  10. FENISTIL (GERMANY) [Concomitant]
     Route: 065
     Dates: start: 20120507, end: 20120507
  11. METHYLPREDNISOLONE. [Concomitant]
     Active Substance: METHYLPREDNISOLONE
     Route: 065
     Dates: start: 20120507, end: 20120507
  12. PARACETAMOL [Concomitant]
     Active Substance: ACETAMINOPHEN
     Route: 065
     Dates: start: 20121022, end: 20121022
  13. CEFPODOXIME [Concomitant]
     Active Substance: CEFPODOXIME
     Indication: INFECTION
     Route: 065
     Dates: start: 20140210, end: 20140217
  14. MONURIL [Concomitant]
     Active Substance: FOSFOMYCIN SODIUM
     Indication: INFECTION
     Route: 065
     Dates: start: 20140302, end: 20140302
  15. AERIUS (GERMANY) [Concomitant]
     Route: 065
     Dates: start: 20120423, end: 20120423
  16. FENISTIL (GERMANY) [Concomitant]
     Indication: PREMEDICATION
     Route: 065
     Dates: start: 20111107, end: 20111107
  17. METHYLPREDNISOLONE. [Concomitant]
     Active Substance: METHYLPREDNISOLONE
     Route: 065
     Dates: start: 20111123, end: 20111123
  18. LECICARBON (GERMANY) [Concomitant]
     Route: 065
     Dates: start: 20130222
  19. OCRELIZUMAB [Suspect]
     Active Substance: OCRELIZUMAB
     Route: 042
     Dates: start: 20120423, end: 20120423
  20. AERIUS (GERMANY) [Concomitant]
     Route: 065
     Dates: start: 20121022, end: 20121022
  21. PARACETAMOL [Concomitant]
     Active Substance: ACETAMINOPHEN
     Route: 065
     Dates: start: 20121008, end: 20121008
  22. ACICLOVIR [Concomitant]
     Active Substance: ACYCLOVIR
     Indication: HERPES VIRUS INFECTION
     Route: 065
     Dates: start: 20120127, end: 20120127
  23. NOVALGIN [Concomitant]
     Active Substance: METAMIZOLE SODIUM
     Indication: RIB FRACTURE
     Route: 065
     Dates: start: 20130618, end: 20130630
  24. MONURIL [Concomitant]
     Active Substance: FOSFOMYCIN SODIUM
     Route: 065
     Dates: start: 20140226, end: 20140226
  25. OCRELIZUMAB [Suspect]
     Active Substance: OCRELIZUMAB
     Dosage: DISCONTINUED FROM STUDY ON 11/APR/2014
     Route: 042
     Dates: start: 20130703
  26. AERIUS (GERMANY) [Concomitant]
     Route: 065
     Dates: start: 20121008, end: 20121008
  27. FENISTIL (GERMANY) [Concomitant]
     Route: 065
     Dates: start: 20121008, end: 20121008
  28. PARACETAMOL [Concomitant]
     Active Substance: ACETAMINOPHEN
     Route: 065
     Dates: start: 20120507, end: 20120507
  29. ASPIRIN. [Concomitant]
     Active Substance: ASPIRIN
     Indication: NASOPHARYNGITIS
     Route: 065
     Dates: start: 20111125, end: 20111127
  30. NITROFURANTOIN. [Concomitant]
     Active Substance: NITROFURANTOIN
     Indication: BLADDER DYSFUNCTION
     Route: 065
     Dates: start: 201103
  31. FAMPYRA [Concomitant]
     Active Substance: DALFAMPRIDINE
     Route: 065
     Dates: start: 20130608
  32. OCRELIZUMAB [Suspect]
     Active Substance: OCRELIZUMAB
     Route: 042
     Dates: start: 20120507, end: 20120507
  33. OCRELIZUMAB [Suspect]
     Active Substance: OCRELIZUMAB
     Dosage: INFUSION SLOWED DOWN
     Route: 042
     Dates: start: 20121008, end: 20121008
  34. OCRELIZUMAB [Suspect]
     Active Substance: OCRELIZUMAB
     Route: 042
     Dates: start: 20121022, end: 20121022
  35. FENISTIL (GERMANY) [Concomitant]
     Route: 065
     Dates: start: 20111123, end: 20111123
  36. FENISTIL (GERMANY) [Concomitant]
     Route: 065
     Dates: start: 20121022, end: 20121022
  37. METHYLPREDNISOLONE. [Concomitant]
     Active Substance: METHYLPREDNISOLONE
     Indication: PREMEDICATION
     Route: 065
     Dates: start: 20111107, end: 20111107
  38. METHYLPREDNISOLONE. [Concomitant]
     Active Substance: METHYLPREDNISOLONE
     Route: 065
     Dates: start: 20121008, end: 20121008
  39. PARACETAMOL [Concomitant]
     Active Substance: ACETAMINOPHEN
     Route: 065
     Dates: start: 20111123, end: 20111123
  40. ACICLOVIR [Concomitant]
     Active Substance: ACYCLOVIR
     Route: 065
     Dates: start: 20120128, end: 20120214
  41. KORODIN (GERMANY) [Concomitant]
     Indication: HYPOTENSION
     Dosage: 20 DROPS
     Route: 065
  42. RINGER SOLUTION [Concomitant]
     Indication: HYPOTENSION
     Route: 065
     Dates: start: 20120507, end: 20120507
  43. OCRELIZUMAB [Suspect]
     Active Substance: OCRELIZUMAB
     Indication: PRIMARY PROGRESSIVE MULTIPLE SCLEROSIS
     Dosage: ON DAYS 1 AND 15 OF EVERY 24 WEEK TREATMENT CYCLE
     Route: 042
     Dates: start: 20111107, end: 20111107
  44. AERIUS (GERMANY) [Concomitant]
     Route: 065
     Dates: start: 20111123, end: 20111123
  45. FENISTIL (GERMANY) [Concomitant]
     Route: 065
     Dates: start: 20120423, end: 20120423
  46. METHYLPREDNISOLONE. [Concomitant]
     Active Substance: METHYLPREDNISOLONE
     Route: 065
     Dates: start: 20121022, end: 20121022

REACTIONS (1)
  - Breast cancer [Recovered/Resolved]

NARRATIVE: CASE EVENT DATE: 20130130
